FAERS Safety Report 18595219 (Version 1)
Quarter: 2020Q4

REPORT INFORMATION
  Report Type: Spontaneous
  Country: US (occurrence: US)
  Receive Date: 20201208
  Receipt Date: 20201208
  Transmission Date: 20210114
  Serious: Yes (Other)
  Sender: FDA-Public Use
  Company Number: None

PATIENT
  Age: 58 Year
  Sex: Female

DRUGS (20)
  1. SERTRALINE [Concomitant]
     Active Substance: SERTRALINE HYDROCHLORIDE
  2. ONDANSETRON [Concomitant]
     Active Substance: ONDANSETRON
  3. NARCAN [Concomitant]
     Active Substance: NALOXONE HYDROCHLORIDE
  4. OCEAN SALINE NASAL SPRAY [Concomitant]
     Active Substance: SODIUM CHLORIDE
  5. NYSTATIN TOP POWDER [Concomitant]
  6. OMEPRAZOLE. [Concomitant]
     Active Substance: OMEPRAZOLE
  7. K-TAB [Concomitant]
     Active Substance: POTASSIUM CHLORIDE
  8. FERROUS SULFATE. [Concomitant]
     Active Substance: FERROUS SULFATE
  9. FLONASE [Concomitant]
     Active Substance: FLUTICASONE PROPIONATE
  10. AMBRISENTAN 10MG TABLETS 30/BO: 10MG [Suspect]
     Active Substance: AMBRISENTAN
     Indication: PULMONARY HYPERTENSION
     Route: 048
     Dates: start: 201208
  11. VELETRI [Concomitant]
     Active Substance: EPOPROSTENOL
  12. FUROSEMIDE. [Concomitant]
     Active Substance: FUROSEMIDE
  13. REFRESH OPTIVE ADVANCE OPHT DROPPERETTE [Concomitant]
  14. OXYGEN INTRANASAL [Concomitant]
  15. SIKDENAFIL [Concomitant]
  16. DIGOXIN. [Concomitant]
     Active Substance: DIGOXIN
  17. WARFARIN [Concomitant]
     Active Substance: WARFARIN
  18. TEMAZEPAM. [Concomitant]
     Active Substance: TEMAZEPAM
  19. PERCOCET [Concomitant]
     Active Substance: ACETAMINOPHEN\OXYCODONE HYDROCHLORIDE
  20. BACLOFEN. [Concomitant]
     Active Substance: BACLOFEN

REACTIONS (3)
  - Dyspnoea [None]
  - Influenza like illness [None]
  - Streptococcus test positive [None]

NARRATIVE: CASE EVENT DATE: 20201121
